FAERS Safety Report 10191902 (Version 1)
Quarter: 2014Q2

REPORT INFORMATION
  Report Type: Spontaneous
  Country: FR (occurrence: FR)
  Receive Date: 20140523
  Receipt Date: 20140523
  Transmission Date: 20141212
  Serious: Yes (Hospitalization)
  Sender: FDA-Public Use
  Company Number: FR-GLAXOSMITHKLINE-B0995125A

PATIENT
  Age: 48 Year
  Sex: Male

DRUGS (1)
  1. ARIXTRA [Suspect]
     Indication: EMBOLISM VENOUS
     Route: 058
     Dates: end: 2012

REACTIONS (2)
  - Gastrointestinal haemorrhage [Recovered/Resolved]
  - Incorrect drug administration duration [Unknown]
